FAERS Safety Report 4873184-9 (Version None)
Quarter: 2005Q4

REPORT INFORMATION
  Report Type: 
  Country: None (occurrence: None)
  Receive Date: 20051201
  Receipt Date: 20050818
  Transmission Date: 20060501
  Serious: No
  Sender: FDA-Public Use
  Company Number: 2005PV001265

PATIENT
  Age: 58 Year
  Sex: Female
  Weight: 136.0791 kg

DRUGS (7)
  1. BYETTA [Suspect]
     Indication: DIABETES MELLITUS NON-INSULIN-DEPENDENT
     Dosage: 5 MCG; BID; SC
     Route: 058
     Dates: start: 20050801, end: 20050920
  2. DEXAMETHASONE TAB [Concomitant]
  3. LIPITOR [Concomitant]
  4. TERAZOSIN [Concomitant]
  5. HYZAAR [Concomitant]
  6. ASPIRIN [Concomitant]
  7. AMBIEN [Concomitant]

REACTIONS (5)
  - COLD SWEAT [None]
  - HOT FLUSH [None]
  - HYPERHIDROSIS [None]
  - NASOPHARYNGITIS [None]
  - PYREXIA [None]
